FAERS Safety Report 6979528-6 (Version None)
Quarter: 2010Q3

REPORT INFORMATION
  Report Type: 
  Country: None (occurrence: None)
  Receive Date: 20100910
  Receipt Date: 20100910
  Transmission Date: 20110219
  Serious: No
  Sender: FDA-Public Use
  Company Number: None

PATIENT
  Age: 44 Year
  Sex: Female
  Weight: 63.6 kg

DRUGS (1)
  1. MIRENA [Suspect]
     Indication: CONTRACEPTION
     Dosage: MIRENA IUD INTRAUTERINE
     Route: 015
     Dates: start: 20100601, end: 20100801

REACTIONS (11)
  - ABDOMINAL DISTENSION [None]
  - ABDOMINAL PAIN [None]
  - DEPRESSED MOOD [None]
  - FLUID RETENTION [None]
  - HUNGER [None]
  - MENORRHAGIA [None]
  - OEDEMA PERIPHERAL [None]
  - POLYMENORRHOEA [None]
  - PREMENSTRUAL SYNDROME [None]
  - THROMBOSIS [None]
  - WEIGHT INCREASED [None]
